FAERS Safety Report 7249526-6 (Version None)
Quarter: 2011Q1

REPORT INFORMATION
  Report Type: 
  Country: None (occurrence: None)
  Receive Date: 20110128
  Receipt Date: 20101208
  Transmission Date: 20110831
  Serious: Yes (Hospitalization, Disabling)
  Sender: FDA-Public Use
  Company Number: JP-BAYER-201013477BYL

PATIENT
  Sex: Male
  Weight: 57 kg

DRUGS (7)
  1. NEXAVAR [Suspect]
     Indication: RENAL CELL CARCINOMA
     Dosage: 400 MG, BID
     Route: 048
     Dates: start: 20100501, end: 20100502
  2. ALOSITOL [Concomitant]
     Indication: GOUT
     Dosage: DAILY DOSE 100 MG
     Route: 048
     Dates: start: 20040101
  3. MELBIN [Concomitant]
     Indication: DIABETES MELLITUS
     Dosage: DAILY DOSE 250 MG
     Route: 048
     Dates: start: 20040101
  4. LASIX [Concomitant]
     Indication: HYPERTENSION
     Dosage: DAILY DOSE 20 MG
     Route: 065
     Dates: start: 20040101
  5. TAKEPRON [Concomitant]
     Indication: GASTRITIS
     Dosage: DAILY DOSE 15 MG
     Route: 048
     Dates: start: 20040101
  6. URALYT [Concomitant]
     Indication: GOUT
     Dosage: DAILY DOSE 1 G
     Route: 048
     Dates: start: 20040101
  7. SUTENT [Suspect]
     Indication: RENAL CELL CARCINOMA
     Dosage: 50 MG, QD
     Route: 048
     Dates: start: 20100409, end: 20100430

REACTIONS (2)
  - RENAL IMPAIRMENT [None]
  - KIDNEY RUPTURE [None]
